FAERS Safety Report 12778931 (Version 1)
Quarter: 2016Q3

REPORT INFORMATION
  Report Type: Spontaneous
  Country: US (occurrence: US)
  Receive Date: 20160926
  Receipt Date: 20160926
  Transmission Date: 20161109
  Serious: No
  Sender: FDA-Public Use
  Company Number: US-JAZZ-2016-US-011117

PATIENT
  Sex: Female

DRUGS (53)
  1. CLARITIN-D 12 HOUR [Concomitant]
     Active Substance: LORATADINE\PSEUDOEPHEDRINE SULFATE
  2. METAMUCIL [Concomitant]
     Active Substance: PLANTAGO SEED
  3. METFORMIN [Concomitant]
     Active Substance: METFORMIN HYDROCHLORIDE
  4. GABAPENTIN. [Concomitant]
     Active Substance: GABAPENTIN
  5. GENTEAL MILD [Concomitant]
     Active Substance: HYPROMELLOSE 2910 (4000 MPA.S)
  6. SYNTHROID [Concomitant]
     Active Substance: LEVOTHYROXINE SODIUM
  7. XYREM [Suspect]
     Active Substance: SODIUM OXYBATE
     Dosage: 4.5 G, BID
     Route: 048
     Dates: start: 201007
  8. ASACOL [Concomitant]
     Active Substance: MESALAMINE
  9. EFFEXOR [Concomitant]
     Active Substance: VENLAFAXINE HYDROCHLORIDE
  10. NUVIGIL [Concomitant]
     Active Substance: ARMODAFINIL
  11. REFRESH OPTIVE [Concomitant]
     Active Substance: CARBOXYMETHYLCELLULOSE SODIUM\GLYCERIN
  12. UROXATRAL [Concomitant]
     Active Substance: ALFUZOSIN HYDROCHLORIDE
  13. AMPYRA [Concomitant]
     Active Substance: DALFAMPRIDINE
  14. CELEBREX [Concomitant]
     Active Substance: CELECOXIB
  15. LISINOPRIL. [Concomitant]
     Active Substance: LISINOPRIL
  16. XYREM [Suspect]
     Active Substance: SODIUM OXYBATE
     Dosage: DOSE ADJUSTMENTS
     Route: 048
     Dates: start: 201006, end: 201007
  17. BIOTIN [Concomitant]
     Active Substance: BIOTIN
  18. DORZOLAMIDE TIMOLOL [Concomitant]
     Active Substance: DORZOLAMIDE
  19. ALLEGRA ALLERGY [Concomitant]
     Active Substance: FEXOFENADINE HYDROCHLORIDE
  20. FLONASE ALLERGY RLF [Concomitant]
  21. LASIX [Concomitant]
     Active Substance: FUROSEMIDE
  22. VITAMIN D [Concomitant]
     Active Substance: CHOLECALCIFEROL
  23. OXYCODONE AND ACETAMINOPHEN [Concomitant]
     Active Substance: ACETAMINOPHEN\OXYCODONE HYDROCHLORIDE
  24. MULTI VIT [Concomitant]
  25. NEXIUM [Concomitant]
     Active Substance: ESOMEPRAZOLE MAGNESIUM
  26. ADDERALL [Concomitant]
     Active Substance: AMPHETAMINE ASPARTATE\AMPHETAMINE SULFATE\DEXTROAMPHETAMINE SACCHARATE\DEXTROAMPHETAMINE SULFATE
  27. ARICEPT [Concomitant]
     Active Substance: DONEPEZIL HYDROCHLORIDE
  28. LIPITOR [Concomitant]
     Active Substance: ATORVASTATIN CALCIUM
  29. SINGULAIR [Concomitant]
     Active Substance: MONTELUKAST SODIUM
  30. AMPHETAMINE [Concomitant]
     Active Substance: AMPHETAMINE
  31. FISH OIL [Concomitant]
     Active Substance: FISH OIL
  32. ASPIRIN. [Concomitant]
     Active Substance: ASPIRIN
  33. SIMETHICONE (DIMETHICONE) [Concomitant]
     Active Substance: DIMETHICONE
  34. TOPAMAX [Concomitant]
     Active Substance: TOPIRAMATE
  35. CYTOMEL [Concomitant]
     Active Substance: LIOTHYRONINE SODIUM
  36. DIGESTIVE ENZYMES [Concomitant]
     Active Substance: UNSPECIFIED INGREDIENT
  37. MODAFINIL. [Concomitant]
     Active Substance: MODAFINIL
  38. NORCO [Concomitant]
     Active Substance: ACETAMINOPHEN\HYDROCODONE BITARTRATE
  39. EFFEXOR XR [Concomitant]
     Active Substance: VENLAFAXINE HYDROCHLORIDE
  40. XYREM [Suspect]
     Active Substance: SODIUM OXYBATE
     Indication: INSOMNIA
     Dosage: 2.25 G, BID
     Route: 048
     Dates: start: 201006, end: 201006
  41. COLACE [Concomitant]
     Active Substance: DOCUSATE SODIUM
  42. CRESTOR [Concomitant]
     Active Substance: ROSUVASTATIN CALCIUM
  43. CYMBALTA [Concomitant]
     Active Substance: DULOXETINE HYDROCHLORIDE
  44. FEXOFENADINE [Concomitant]
     Active Substance: FEXOFENADINE\FEXOFENADINE HYDROCHLORIDE
  45. NOVOLOG [Concomitant]
     Active Substance: INSULIN ASPART
  46. ZETIA [Concomitant]
     Active Substance: EZETIMIBE
  47. HYDROCODONE/ACETAMINOPHEN [Concomitant]
     Active Substance: ACETAMINOPHEN\HYDROCODONE
  48. LAMOTRIGINE. [Concomitant]
     Active Substance: LAMOTRIGINE
  49. CETIRIZINE HCL [Concomitant]
     Active Substance: CETIRIZINE HYDROCHLORIDE
  50. MULTIVITAMINS [Concomitant]
     Active Substance: VITAMINS
  51. TYSABRI [Concomitant]
     Active Substance: NATALIZUMAB
  52. VITAMIN B12 [Concomitant]
     Active Substance: CYANOCOBALAMIN
  53. CARAFATE [Concomitant]
     Active Substance: SUCRALFATE

REACTIONS (1)
  - Malaise [Not Recovered/Not Resolved]
